FAERS Safety Report 6411743-2 (Version None)
Quarter: 2009Q4

REPORT INFORMATION
  Report Type: 
  Country: None (occurrence: None)
  Receive Date: 20091023
  Receipt Date: 20091015
  Transmission Date: 20100525
  Serious: Yes (Hospitalization)
  Sender: FDA-Public Use
  Company Number: FR-ASTRAZENECA-2009SE20576

PATIENT
  Age: 62 Year
  Sex: Male

DRUGS (8)
  1. NEXIUM [Suspect]
     Route: 048
     Dates: start: 20090823, end: 20090913
  2. ROCEPHIN [Suspect]
     Route: 042
     Dates: start: 20090823, end: 20090914
  3. FUNGIZONE [Suspect]
     Route: 048
     Dates: start: 20090827, end: 20090913
  4. ANDROCUR [Suspect]
     Route: 048
     Dates: start: 20090901, end: 20090910
  5. ZOMETA [Suspect]
     Route: 042
     Dates: start: 20090831, end: 20090831
  6. LOVENOX [Concomitant]
     Route: 065
  7. GAVISCON [Concomitant]
     Route: 065
  8. EDUCTYL [Concomitant]
     Route: 065

REACTIONS (1)
  - HEPATOCELLULAR INJURY [None]
